FAERS Safety Report 7101333-0 (Version None)
Quarter: 2010Q4

REPORT INFORMATION
  Report Type: 
  Country: None (occurrence: None)
  Receive Date: 20101115
  Receipt Date: 20101111
  Transmission Date: 20110411
  Serious: Yes (Death)
  Sender: FDA-Public Use
  Company Number: BR-B.I. PHARMACEUTICALS,INC./RIDGEFIELD-2010-BR-02712BR

PATIENT
  Age: 77 Year
  Sex: Female

DRUGS (2)
  1. MICARDIS [Suspect]
  2. MEDICATION NOT FURTHER SPECIFIED [Concomitant]

REACTIONS (1)
  - INFARCTION [None]
